FAERS Safety Report 12965519 (Version 2)
Quarter: 2016Q4

REPORT INFORMATION
  Report Type: Spontaneous
  Country: CA (occurrence: CA)
  Receive Date: 20161122
  Receipt Date: 20161125
  Transmission Date: 20170207
  Serious: Yes (Death, Other)
  Sender: FDA-Public Use
  Company Number: CA-JNJFOC-20161115740

PATIENT
  Age: 33 Year
  Sex: Female

DRUGS (5)
  1. VENLAFAXINE [Concomitant]
     Active Substance: VENLAFAXINE HYDROCHLORIDE
     Route: 065
  2. INFLIXIMAB, RECOMBINANT [Suspect]
     Active Substance: INFLIXIMAB
     Indication: CROHN^S DISEASE
     Route: 042
  3. AZATHIOPRINE. [Concomitant]
     Active Substance: AZATHIOPRINE
     Route: 065
  4. PREDNISONE. [Concomitant]
     Active Substance: PREDNISONE
     Dosage: TAPERED AT 5MG PER WEEK
     Route: 065
  5. NORGESTIMATE [Concomitant]
     Active Substance: NORGESTIMATE
     Route: 065

REACTIONS (5)
  - Crohn^s disease [Unknown]
  - Product use issue [Unknown]
  - Herpes simplex hepatitis [Fatal]
  - Off label use [Unknown]
  - Acute hepatic failure [Fatal]
